FAERS Safety Report 12138499 (Version 1)
Quarter: 2016Q1

REPORT INFORMATION
  Report Type: Spontaneous
  Country: BR (occurrence: BR)
  Receive Date: 20160302
  Receipt Date: 20160302
  Transmission Date: 20160526
  Serious: Yes (Other)
  Sender: FDA-Public Use
  Company Number: BR-JNJFOC-20151104451

PATIENT
  Sex: Male

DRUGS (1)
  1. REMICADE [Suspect]
     Active Substance: INFLIXIMAB
     Indication: RHEUMATOID ARTHRITIS
     Route: 042
     Dates: end: 20150201

REACTIONS (5)
  - Musculoskeletal stiffness [Unknown]
  - Spinal pain [Unknown]
  - Malaise [Unknown]
  - Skin disorder [Unknown]
  - Pain [Unknown]
